FAERS Safety Report 5347207-7 (Version None)
Quarter: 2007Q2

REPORT INFORMATION
  Report Type: 
  Country: None (occurrence: None)
  Receive Date: 20070606
  Receipt Date: 20070531
  Transmission Date: 20071010
  Serious: Yes (Hospitalization)
  Sender: FDA-Public Use
  Company Number: HQWYE280111APR07

PATIENT
  Sex: Male

DRUGS (14)
  1. SIROLIMUS [Suspect]
     Indication: PROPHYLAXIS AGAINST TRANSPLANT REJECTION
     Route: 048
     Dates: start: 20070315, end: 20070330
  2. SIROLIMUS [Suspect]
     Route: 048
     Dates: start: 20070331, end: 20070519
  3. SIROLIMUS [Suspect]
     Route: 048
     Dates: start: 20070520
  4. PREDNISONE TAB [Suspect]
     Indication: PROPHYLAXIS AGAINST TRANSPLANT REJECTION
     Route: 048
     Dates: start: 20070203
  5. ACTIGALL [Concomitant]
     Dosage: NOT PROVIDED
     Route: 065
     Dates: start: 20070302
  6. MAGNESIUM SULFATE [Concomitant]
     Dosage: NOT PROVIDED
     Route: 065
     Dates: start: 20070315
  7. ZOLOFT [Concomitant]
     Dosage: NOT PROVIDED
     Route: 065
     Dates: start: 20070204
  8. NOVOLOG [Concomitant]
     Dosage: NOT PROVIDED
     Route: 065
     Dates: start: 20070302
  9. VALCYTE [Concomitant]
     Dosage: NOT PROVIDED
     Route: 065
     Dates: start: 20070302
  10. CARVEDILOL [Concomitant]
     Dosage: NOT PROVIDED
     Route: 065
     Dates: start: 20070204
  11. LOPRESSOR [Concomitant]
     Dosage: NOT PROVIDED
     Route: 065
     Dates: start: 20070302
  12. TRAZODONE HYDROCHLORIDE [Concomitant]
     Dosage: NOT PROVIDED
     Route: 065
     Dates: start: 20070204
  13. MYCOPHENOLATE MOFETIL [Suspect]
     Indication: PROPHYLAXIS AGAINST TRANSPLANT REJECTION
     Route: 048
     Dates: start: 20070308
  14. NPH INSULIN [Concomitant]
     Dosage: NOT PROVIDED
     Route: 065
     Dates: start: 20070302

REACTIONS (3)
  - CONDITION AGGRAVATED [None]
  - DRUG ERUPTION [None]
  - HEPATITIS C [None]
